FAERS Safety Report 8105612-X (Version None)
Quarter: 2012Q1

REPORT INFORMATION
  Report Type: 
  Country: None (occurrence: None)
  Receive Date: 20120201
  Receipt Date: 20120125
  Transmission Date: 20120608
  Serious: No
  Sender: FDA-Public Use
  Company Number: US-BAYER-2012-008406

PATIENT
  Age: 54 Year
  Sex: Female
  Weight: 73 kg

DRUGS (3)
  1. ASPIRIN [Suspect]
     Indication: HEADACHE
     Dosage: 2 TAB TWICE DAILY
     Route: 048
     Dates: start: 20120117, end: 20120118
  2. ALEVE (CAPLET) [Suspect]
     Indication: HEADACHE
     Dosage: 1 TAB QD
     Dates: start: 20120119, end: 20120120
  3. NAPROXEN (ALEVE) [Suspect]
     Dosage: 1 TAB QD
     Route: 048
     Dates: start: 20120119, end: 20120120

REACTIONS (2)
  - NECK PAIN [None]
  - HEADACHE [None]
